FAERS Safety Report 14783809 (Version 1)
Quarter: 2018Q2

REPORT INFORMATION
  Report Type: Spontaneous
  Country: US (occurrence: US)
  Receive Date: 20180420
  Receipt Date: 20180420
  Transmission Date: 20180711
  Serious: Yes (Other)
  Sender: FDA-Public Use
  Company Number: US-SA-2018SA098551

PATIENT
  Age: 64 Year
  Sex: Male

DRUGS (14)
  1. VORICONAZOLE. [Suspect]
     Active Substance: VORICONAZOLE
     Indication: MENINGITIS COCCIDIOIDES
     Route: 065
  2. CYCLOPHOSPHAMIDE. [Suspect]
     Active Substance: CYCLOPHOSPHAMIDE
     Indication: CHRONIC LYMPHOCYTIC LEUKAEMIA STAGE 4
     Route: 065
  3. VORICONAZOLE. [Suspect]
     Active Substance: VORICONAZOLE
     Indication: EVIDENCE BASED TREATMENT
     Route: 065
  4. ITRACONAZOLE. [Suspect]
     Active Substance: ITRACONAZOLE
     Indication: MENINGITIS COCCIDIOIDES
     Dosage: SUSPENSION
     Route: 065
  5. VORICONAZOLE. [Suspect]
     Active Substance: VORICONAZOLE
     Indication: MENINGITIS COCCIDIOIDES
     Route: 065
  6. AMPHOTERICIN B. [Suspect]
     Active Substance: AMPHOTERICIN B
     Indication: MENINGITIS COCCIDIOIDES
     Dosage: LIPOSOMAL AMPHOTERICIN B
     Route: 065
  7. FLUCONAZOLE. [Suspect]
     Active Substance: FLUCONAZOLE
     Indication: MENINGITIS COCCIDIOIDES
     Route: 065
  8. FLUCONAZOLE. [Suspect]
     Active Substance: FLUCONAZOLE
     Indication: MENINGITIS COCCIDIOIDES
     Route: 065
  9. FLUDARABINE PHOSPHATE. [Suspect]
     Active Substance: FLUDARABINE PHOSPHATE
     Indication: CHRONIC LYMPHOCYTIC LEUKAEMIA STAGE 4
     Route: 065
  10. VORICONAZOLE. [Suspect]
     Active Substance: VORICONAZOLE
     Indication: MENINGITIS COCCIDIOIDES
     Route: 065
  11. RITUXIMAB. [Suspect]
     Active Substance: RITUXIMAB
     Indication: CHRONIC LYMPHOCYTIC LEUKAEMIA STAGE 4
     Route: 065
  12. VORICONAZOLE. [Suspect]
     Active Substance: VORICONAZOLE
     Indication: EVIDENCE BASED TREATMENT
     Route: 065
  13. VORICONAZOLE. [Suspect]
     Active Substance: VORICONAZOLE
     Indication: EVIDENCE BASED TREATMENT
     Route: 065
  14. ITRACONAZOLE. [Suspect]
     Active Substance: ITRACONAZOLE
     Indication: MENINGITIS COCCIDIOIDES
     Dosage: SUSPENSION
     Route: 065

REACTIONS (26)
  - Neutropenia [Unknown]
  - Meningitis coccidioides [Recovering/Resolving]
  - Squamous cell carcinoma [Unknown]
  - Fluorosis [Recovering/Resolving]
  - Bone pain [Recovering/Resolving]
  - Malaise [Recovering/Resolving]
  - Hemiplegia [Recovering/Resolving]
  - Osteocalcin increased [Recovering/Resolving]
  - Blood alkaline phosphatase increased [Recovering/Resolving]
  - Neuropathy peripheral [Unknown]
  - Toxicity to various agents [Unknown]
  - Fluoride increased [Recovering/Resolving]
  - Bone marrow failure [Unknown]
  - Diplopia [Unknown]
  - Pyrexia [Recovering/Resolving]
  - Back pain [Recovering/Resolving]
  - Actinic keratosis [Unknown]
  - Periostitis [Recovering/Resolving]
  - Photopsia [Unknown]
  - Alopecia [Unknown]
  - Thrombocytopenia [Unknown]
  - Rash [Unknown]
  - Hyperkeratosis [Unknown]
  - Headache [Unknown]
  - Dyspnoea [Recovering/Resolving]
  - Drug ineffective [Unknown]
